FAERS Safety Report 6423399-3 (Version None)
Quarter: 2009Q4

REPORT INFORMATION
  Report Type: 
  Country: None (occurrence: None)
  Receive Date: 20091102
  Receipt Date: 20091028
  Transmission Date: 20100525
  Serious: Yes (Hospitalization)
  Sender: FDA-Public Use
  Company Number: A0813797A

PATIENT
  Sex: Female

DRUGS (7)
  1. ADVAIR DISKUS 100/50 [Suspect]
     Indication: ASTHMA
     Dosage: 1PUFF TWICE PER DAY
     Route: 055
     Dates: start: 20070101
  2. DIGOXIN [Concomitant]
  3. AMIODARONE [Concomitant]
  4. ASPIRIN [Concomitant]
  5. LASIX [Concomitant]
  6. AMLODIPINE [Concomitant]
  7. PROVENTIL-HFA [Concomitant]

REACTIONS (8)
  - CARDIAC FAILURE CONGESTIVE [None]
  - CHEST DISCOMFORT [None]
  - DRUG DEPENDENCE [None]
  - DYSPHAGIA [None]
  - DYSPNOEA [None]
  - HEART RATE IRREGULAR [None]
  - NAUSEA [None]
  - WHEEZING [None]
